APPROVED DRUG PRODUCT: DEXYCU KIT
Active Ingredient: DEXAMETHASONE
Strength: 9%
Dosage Form/Route: SUSPENSION;INTRAOCULAR
Application: N208912 | Product #001
Applicant: EYEPOINT PHARMACEUTICALS INC
Approved: Feb 9, 2018 | RLD: Yes | RS: Yes | Type: RX

PATENTS:
Patent 10028965 | Expires: May 23, 2034
Patent 11097061 | Expires: Jun 23, 2039
Patent 10022502 | Expires: Jun 22, 2034
Patent 10799642 | Expires: May 11, 2032
Patent 10159683 | Expires: May 23, 2034